FAERS Safety Report 7893753-1 (Version None)
Quarter: 2011Q4

REPORT INFORMATION
  Report Type: 
  Country: None (occurrence: None)
  Receive Date: 20111104
  Receipt Date: 20111101
  Transmission Date: 20120403
  Serious: Yes (Life-Threatening)
  Sender: FDA-Public Use
  Company Number: PHHY2011GB96241

PATIENT
  Sex: Male
  Weight: 109.5 kg

DRUGS (2)
  1. ZOLADEX [Concomitant]
  2. BICALUTAMIDE [Suspect]
     Indication: PROSTATE CANCER
     Dosage: UNK
     Route: 048
     Dates: start: 20110406, end: 20111006

REACTIONS (1)
  - CARDIAC FAILURE [None]
